FAERS Safety Report 6397197-3 (Version None)
Quarter: 2009Q4

REPORT INFORMATION
  Report Type: 
  Country: None (occurrence: None)
  Receive Date: 20091012
  Receipt Date: 20091002
  Transmission Date: 20100525
  Serious: Yes (Hospitalization)
  Sender: FDA-Public Use
  Company Number: CA-ASTRAZENECA-2009SE18182

PATIENT
  Age: 89 Year
  Sex: Female

DRUGS (6)
  1. ATACAND [Suspect]
     Indication: HYPERTENSION
     Route: 048
  2. TUMS [Concomitant]
  3. ASPIRIN [Concomitant]
  4. ELTROXIN [Concomitant]
  5. VITAMIN D [Concomitant]
  6. ASCORBIC ACID [Concomitant]

REACTIONS (3)
  - CHOLECYSTITIS INFECTIVE [None]
  - HIP FRACTURE [None]
  - WRONG TECHNIQUE IN DRUG USAGE PROCESS [None]
